FAERS Safety Report 16734563 (Version 3)
Quarter: 2019Q4

REPORT INFORMATION
  Report Type: Spontaneous
  Country: JP (occurrence: JP)
  Receive Date: 20190823
  Receipt Date: 20191121
  Transmission Date: 20200122
  Serious: Yes (Hospitalization, Other)
  Sender: FDA-Public Use
  Company Number: JP-ELI_LILLY_AND_COMPANY-JP201908009471

PATIENT
  Age: 66 Year
  Sex: Male
  Weight: 72 kg

DRUGS (7)
  1. DOCETAXEL. [Concomitant]
     Active Substance: DOCETAXEL
     Indication: LUNG ADENOCARCINOMA STAGE IV
     Dosage: 111.48 MG, CYCLICAL
     Route: 041
     Dates: start: 20190709, end: 20190730
  2. G LASTA [Concomitant]
     Active Substance: PEGFILGRASTIM
     Indication: PROPHYLAXIS
     Dosage: 3.6 MG, CYCLICAL
     Route: 058
     Dates: start: 20190711, end: 20190801
  3. KALLIDINOGENASE [Concomitant]
     Active Substance: KALLIDINOGENASE
     Indication: RETINAL HAEMORRHAGE
     Dosage: 3 DOSAGE FORM, DAILY
  4. TRAZENTA [Concomitant]
     Active Substance: LINAGLIPTIN
     Indication: DIABETES MELLITUS
     Dosage: 1 DOSAGE FORM, DAILY
     Route: 048
     Dates: start: 20190404
  5. SUREPOST [Concomitant]
     Active Substance: REPAGLINIDE
     Indication: DIABETES MELLITUS
     Dosage: 2 DOSAGE FORM, DAILY
     Route: 048
     Dates: start: 20190710
  6. CYRAMZA [Suspect]
     Active Substance: RAMUCIRUMAB
     Indication: LUNG ADENOCARCINOMA STAGE IV
     Dosage: 730 MG, CYCLICAL
     Route: 041
     Dates: start: 20190709, end: 20190730
  7. METGLUCO [Concomitant]
     Active Substance: METFORMIN HYDROCHLORIDE
     Indication: DIABETES MELLITUS
     Dosage: 3 DOSAGE FORM, DAILY
     Route: 048
     Dates: start: 20190605

REACTIONS (2)
  - Fistula [Recovered/Resolved]
  - Pneumothorax [Recovering/Resolving]

NARRATIVE: CASE EVENT DATE: 2019
